FAERS Safety Report 5857953-4 (Version None)
Quarter: 2008Q3

REPORT INFORMATION
  Report Type: 
  Country: None (occurrence: None)
  Receive Date: 20080818
  Receipt Date: 20080527
  Transmission Date: 20090109
  Serious: No
  Sender: FDA-Public Use
  Company Number: WAES 0805USA05586

PATIENT
  Age: 69 Year
  Sex: Male

DRUGS (8)
  1. JANUVIA [Suspect]
     Indication: TYPE 2 DIABETES MELLITUS
     Dosage: 100 MG/DAILY/PO ; 100 MG/DAILY/PO
     Route: 048
     Dates: start: 20071001, end: 20080315
  2. JANUVIA [Suspect]
     Indication: TYPE 2 DIABETES MELLITUS
     Dosage: 100 MG/DAILY/PO ; 100 MG/DAILY/PO
     Route: 048
     Dates: start: 20080331
  3. ACTOS [Concomitant]
  4. HYZAAR [Concomitant]
  5. DOXYCYCLINE HYCLATE [Concomitant]
  6. GLIPIZIDE [Concomitant]
  7. LOVASTATIN [Concomitant]
  8. METFORMIN HCL [Concomitant]

REACTIONS (4)
  - DRY EYE [None]
  - EYE DISCHARGE [None]
  - OCULAR HYPERAEMIA [None]
  - ROSACEA [None]
